FAERS Safety Report 5989584-X (Version None)
Quarter: 2008Q4

REPORT INFORMATION
  Report Type: 
  Country: None (occurrence: None)
  Receive Date: 20081204
  Receipt Date: 20081121
  Transmission Date: 20090506
  Serious: Yes (Life-Threatening, Hospitalization)
  Sender: FDA-Public Use
  Company Number: 001632

PATIENT
  Age: 58 Year
  Sex: Male

DRUGS (6)
  1. BUSULFEX [Suspect]
     Indication: STEM CELL TRANSPLANT
     Dosage: 15.2 ML, DAILY DOSE
     Route: 042
     Dates: start: 20070723, end: 20070723
  2. PREDNISOLONE [Suspect]
  3. CYCLOPHOSPHAMIDE [Concomitant]
  4. VALPROATE SODIUM [Concomitant]
  5. NARTOGRASTIM (NARTOGRASTIM) [Concomitant]
  6. CYCLOSPORINE [Concomitant]

REACTIONS (9)
  - ACUTE GRAFT VERSUS HOST DISEASE [None]
  - ANOREXIA [None]
  - CYTOMEGALOVIRUS COLITIS [None]
  - DIARRHOEA [None]
  - FEBRILE NEUTROPENIA [None]
  - MALAISE [None]
  - NAUSEA [None]
  - STEM CELL TRANSPLANT [None]
  - VOMITING [None]
